FAERS Safety Report 20793423 (Version 1)
Quarter: 2022Q2

REPORT INFORMATION
  Report Type: Other
  Country: US (occurrence: None)
  Receive Date: 20220506
  Receipt Date: 20220506
  Transmission Date: 20220720
  Serious: Yes (Other)
  Sender: FDA-Public Use
  Company Number: US-ROCHE-2485128

PATIENT
  Age: 55 Year
  Sex: Male

DRUGS (15)
  1. OCREVUS [Suspect]
     Active Substance: OCRELIZUMAB
     Indication: Multiple sclerosis
     Dosage: DAY 1 AND 15 THEN 600 MG EVERY 6 MONTHS NEXT INFUSION: 17/OCT/2017, 10/APR/2018, 09/MAY/2019, 10/OCT
     Route: 042
  2. AMANTADINE HYDROCHLORIDE [Concomitant]
     Active Substance: AMANTADINE HYDROCHLORIDE
  3. APIXABAN [Concomitant]
     Active Substance: APIXABAN
  4. BACLOFEN [Concomitant]
     Active Substance: BACLOFEN
  5. ASPIRIN [Concomitant]
     Active Substance: ASPIRIN
  6. BUPROPION [Concomitant]
     Active Substance: BUPROPION
  7. CHOLECALCIFEROL [Concomitant]
     Active Substance: CHOLECALCIFEROL
  8. FENOFIBRATE [Concomitant]
     Active Substance: FENOFIBRATE
  9. LISINOPRIL [Concomitant]
     Active Substance: LISINOPRIL
  10. CRANBERRY FRUIT [Concomitant]
  11. EZETIMIBE [Concomitant]
     Active Substance: EZETIMIBE
  12. LORAZEPAM [Concomitant]
     Active Substance: LORAZEPAM
  13. MELATONIN [Concomitant]
     Active Substance: MELATONIN
  14. METOPROLOL TARTRATE [Concomitant]
     Active Substance: METOPROLOL TARTRATE
  15. NITROGLYCERIN [Concomitant]
     Active Substance: NITROGLYCERIN

REACTIONS (10)
  - Flank pain [Unknown]
  - Relapsing multiple sclerosis [Unknown]
  - Urinary tract infection [Unknown]
  - Muscle spasms [Not Recovered/Not Resolved]
  - Fatigue [Not Recovered/Not Resolved]
  - Hypoaesthesia [Not Recovered/Not Resolved]
  - Dizziness [Unknown]
  - Chills [Not Recovered/Not Resolved]
  - Feeling hot [Not Recovered/Not Resolved]
  - Depression [Unknown]

NARRATIVE: CASE EVENT DATE: 20191121
